FAERS Safety Report 24877797 (Version 1)
Quarter: 2025Q1

REPORT INFORMATION
  Report Type: Spontaneous
  Country: US (occurrence: None)
  Receive Date: 20250122
  Receipt Date: 20250122
  Transmission Date: 20250408
  Serious: Yes (Other)
  Sender: FDA-CTU
  Company Number: None

PATIENT
  Age: 1 Day
  Sex: Male
  Weight: 2.36 kg

DRUGS (3)
  1. VORTIOXETINE [Suspect]
     Active Substance: VORTIOXETINE
     Dates: start: 20210523
  2. BUPROPION XL [Suspect]
     Active Substance: BUPROPION HYDROCHLORIDE
     Dates: start: 20210523, end: 20210711
  3. LEVOMEFOLATE CALCIUM [Suspect]
     Active Substance: LEVOMEFOLATE CALCIUM
     Dates: start: 20210523

REACTIONS (2)
  - Body temperature decreased [None]
  - Blood glucose decreased [None]

NARRATIVE: CASE EVENT DATE: 20220209
